FAERS Safety Report 6621952-5 (Version None)
Quarter: 2010Q1

REPORT INFORMATION
  Report Type: 
  Country: None (occurrence: None)
  Receive Date: 20100304
  Receipt Date: 20100218
  Transmission Date: 20100710
  Serious: Yes (Hospitalization)
  Sender: FDA-Public Use
  Company Number: 2010SP006325

PATIENT
  Age: 29 Year
  Sex: Female
  Weight: 53.978 kg

DRUGS (3)
  1. NUVARING [Suspect]
     Indication: CONTRACEPTION
     Dosage: VAG
     Route: 067
     Dates: start: 20070306, end: 20070704
  2. VALTREX [Concomitant]
  3. TRAMADOL HYDROCHLORIDE AND ACETAMINOPHEN [Concomitant]

REACTIONS (32)
  - ANGIOGRAM CEREBRAL ABNORMAL [None]
  - APHASIA [None]
  - ASTHMA [None]
  - ATELECTASIS [None]
  - BRAIN INJURY [None]
  - CEREBRAL HAEMATOMA [None]
  - CEREBRAL HAEMORRHAGE [None]
  - COAGULATION FACTOR VIII LEVEL INCREASED [None]
  - DYSKINESIA [None]
  - DYSPNOEA [None]
  - ENCEPHALOMALACIA [None]
  - FALL [None]
  - GRAND MAL CONVULSION [None]
  - GRANULOMA [None]
  - HEADACHE [None]
  - HEMIPARESIS [None]
  - HEMIPLEGIA [None]
  - HYPOAESTHESIA [None]
  - INTRACRANIAL PRESSURE INCREASED [None]
  - LOSS OF CONSCIOUSNESS [None]
  - MIGRAINE [None]
  - MUSCLE TWITCHING [None]
  - MUSCULOSKELETAL STIFFNESS [None]
  - PANIC ATTACK [None]
  - PNEUMONIA [None]
  - PYREXIA [None]
  - STRIDOR [None]
  - TRANSVERSE SINUS THROMBOSIS [None]
  - UNRESPONSIVE TO STIMULI [None]
  - VISION BLURRED [None]
  - VOCAL CORD DISORDER [None]
  - VOCAL CORD PARALYSIS [None]
